FAERS Safety Report 11825246 (Version 1)
Quarter: 2015Q4

REPORT INFORMATION
  Report Type: Spontaneous
  Country: US (occurrence: US)
  Receive Date: 20151211
  Receipt Date: 20151211
  Transmission Date: 20160305
  Serious: No
  Sender: FDA-Public Use
  Company Number: US-HOSPIRA-2793711

PATIENT
  Age: 46 Year
  Sex: Male

DRUGS (3)
  1. CEFTRIAXONE SODIUM. [Suspect]
     Active Substance: CEFTRIAXONE SODIUM
     Indication: PYREXIA
     Dosage: NOT REPORTED
     Route: 042
     Dates: start: 20150312
  2. CEFTRIAXONE SODIUM. [Suspect]
     Active Substance: CEFTRIAXONE SODIUM
     Indication: BRONCHITIS
     Dosage: NOT REPORTED
     Route: 042
     Dates: start: 20150312
  3. CEFTRIAXONE SODIUM. [Suspect]
     Active Substance: CEFTRIAXONE SODIUM
     Indication: LYMPHADENOPATHY
     Dosage: NOT REPORTED
     Route: 042
     Dates: start: 20150312

REACTIONS (2)
  - No adverse event [None]
  - Expired product administered [Recovered/Resolved]

NARRATIVE: CASE EVENT DATE: 20150312
